FAERS Safety Report 7245176-6 (Version None)
Quarter: 2011Q1

REPORT INFORMATION
  Report Type: 
  Country: None (occurrence: None)
  Receive Date: 20110126
  Receipt Date: 20110114
  Transmission Date: 20110831
  Serious: Yes (Hospitalization, Other)
  Sender: FDA-Public Use
  Company Number: PHHO2011KR01094

PATIENT
  Sex: Male
  Weight: 63 kg

DRUGS (8)
  1. BLINDED NO TREATMENT RECEIVED [Suspect]
     Dosage: CODE NOT BROKEN
     Route: 048
     Dates: start: 20101126
  2. ATORVASTATIN CALCIUM [Concomitant]
  3. COMPARATOR ENALAPRIL [Suspect]
     Indication: CARDIAC FAILURE
     Route: 048
  4. CARVEDILOL [Concomitant]
     Indication: CARDIAC FAILURE CONGESTIVE
  5. BLINDED ENALAPRIL [Suspect]
     Dosage: CODE NOT BROKEN
     Route: 048
     Dates: start: 20101126
  6. TORSEMIDE [Concomitant]
     Indication: CARDIAC FAILURE CONGESTIVE
  7. ALISKIREN [Suspect]
     Indication: CARDIAC FAILURE
     Route: 048
  8. BLINDED ALISKIREN [Suspect]
     Dosage: CODE NOT BROKEN
     Route: 048
     Dates: start: 20101126

REACTIONS (3)
  - CONSTIPATION [None]
  - POLYPECTOMY [None]
  - COLONIC POLYP [None]
